FAERS Safety Report 7235780-3 (Version None)
Quarter: 2011Q1

REPORT INFORMATION
  Report Type: 
  Country: None (occurrence: None)
  Receive Date: 20110111
  Receipt Date: 20110103
  Transmission Date: 20110831
  Serious: Yes (Hospitalization, Disabling)
  Sender: FDA-Public Use
  Company Number: OSCN-NO-0910S-0446

PATIENT
  Age: 58 Year
  Sex: Female
  Weight: 50 kg

DRUGS (1)
  1. OMNISCAN [Suspect]
     Indication: PELVIC PAIN
     Dosage: 15 ML, SINGLE DOSE, I.V.
     Route: 042
     Dates: start: 20050617, end: 20050617

REACTIONS (4)
  - ACTIVITIES OF DAILY LIVING IMPAIRED [None]
  - NEPHROGENIC SYSTEMIC FIBROSIS [None]
  - GAIT DISTURBANCE [None]
  - INSOMNIA [None]
